FAERS Safety Report 5709403-6 (Version None)
Quarter: 2008Q2

REPORT INFORMATION
  Report Type: 
  Country: None (occurrence: None)
  Receive Date: 20080418
  Receipt Date: 20080408
  Transmission Date: 20081010
  Serious: Yes (Hospitalization)
  Sender: FDA-Public Use
  Company Number: FR-AMGEN-UK258246

PATIENT
  Sex: Female

DRUGS (6)
  1. KEPIVANCE [Suspect]
     Indication: MUCOSAL INFLAMMATION
     Dates: start: 20071107, end: 20071122
  2. VALACYCLOVIR [Concomitant]
  3. OMEPRAZOLE [Concomitant]
  4. FRAXODI [Concomitant]
     Route: 058
  5. TRIFLUCAN [Concomitant]
  6. LUTENYL [Concomitant]

REACTIONS (3)
  - ERYTHEMA [None]
  - PIGMENTATION DISORDER [None]
  - SKIN LESION [None]
